FAERS Safety Report 6575679-9 (Version None)
Quarter: 2010Q1

REPORT INFORMATION
  Report Type: 
  Country: None (occurrence: None)
  Receive Date: 20100209
  Receipt Date: 20091118
  Transmission Date: 20100710
  Serious: Yes (Life-Threatening, Hospitalization, Other)
  Sender: FDA-Public Use
  Company Number: GB-MERCK-0911GBR00082

PATIENT
  Age: 75 Year
  Sex: Male

DRUGS (6)
  1. ZOCOR [Suspect]
     Indication: MYOCARDIAL ISCHAEMIA
     Route: 048
     Dates: start: 20020513, end: 20091013
  2. INFLUENZA VIRUS VACCINE (UNSPECIFIED) [Suspect]
     Indication: INFLUENZA IMMUNISATION
     Route: 051
     Dates: start: 20091010
  3. CETIRIZINE HYDROCHLORIDE [Concomitant]
     Route: 065
  4. DIGOXIN [Concomitant]
     Route: 065
  5. FUROSEMIDE [Concomitant]
     Route: 065
  6. WARFARIN [Concomitant]
     Route: 065

REACTIONS (2)
  - RENAL FAILURE ACUTE [None]
  - RHABDOMYOLYSIS [None]
